FAERS Safety Report 18432414 (Version 3)
Quarter: 2021Q1

REPORT INFORMATION
  Report Type: Report from Study
  Country: AU (occurrence: AU)
  Receive Date: 20201027
  Receipt Date: 20210216
  Transmission Date: 20210419
  Serious: Yes (Hospitalization, Other)
  Sender: FDA-Public Use
  Company Number: AU-TAKEDA-2020TUS043922

PATIENT
  Sex: Female

DRUGS (5)
  1. SODIUM CHLORIDE 0.9% [Concomitant]
     Active Substance: SODIUM CHLORIDE
     Dosage: 1000 MILLIGRAM
  2. SALOFALK [MESALAZINE] [Concomitant]
     Active Substance: MESALAMINE
     Dosage: 1 GRAM, QD
  3. PULMICORT TURBUHALER [Concomitant]
     Active Substance: BUDESONIDE
     Dosage: UNK UNK, BID
  4. VEDOLIZUMAB [Suspect]
     Active Substance: VEDOLIZUMAB
     Indication: COLITIS ULCERATIVE
     Dosage: 300 MILLIGRAM, Q8WEEKS
     Route: 042
  5. VAGIFEM LOW [Concomitant]
     Dosage: 10 MICROGRAM, QD

REACTIONS (3)
  - Fatigue [Unknown]
  - Cerebrovascular accident [Unknown]
  - Cough [Unknown]
